FAERS Safety Report 8497982-8 (Version None)
Quarter: 2012Q3

REPORT INFORMATION
  Report Type: 
  Country: None (occurrence: None)
  Receive Date: 20120709
  Receipt Date: 20120618
  Transmission Date: 20120928
  Serious: No
  Sender: FDA-Public Use
  Company Number: US-AMGEN-USASP2011029123

PATIENT
  Age: 60 Year
  Sex: Female
  Weight: 89.796 kg

DRUGS (6)
  1. PROAIR HFA [Concomitant]
     Dosage: UNK
  2. SINGULAIR [Concomitant]
     Dosage: UNK
  3. IBUPROFEN [Concomitant]
     Dosage: UNK
  4. VITAMIN B12                        /00056201/ [Concomitant]
     Dosage: UNK
  5. ENBREL [Suspect]
     Indication: RHEUMATOID ARTHRITIS
     Dosage: 50 MG, QWK
     Dates: start: 20091013
  6. TACLONEX [Concomitant]
     Dosage: UNK

REACTIONS (4)
  - PAIN IN EXTREMITY [None]
  - ARTHRALGIA [None]
  - DRUG INEFFECTIVE [None]
  - BACK PAIN [None]
